FAERS Safety Report 9263988 (Version 2)
Quarter: 2013Q3

REPORT INFORMATION
  Report Type: Spontaneous
  Country: NL (occurrence: NL)
  Receive Date: 20130430
  Receipt Date: 20130712
  Transmission Date: 20140515
  Serious: Yes (Hospitalization, Other)
  Sender: FDA-Public Use
  Company Number: NL-VIIV HEALTHCARE LIMITED-B0888290A

PATIENT
  Sex: Male
  Weight: 71 kg

DRUGS (3)
  1. ZIAGEN [Suspect]
     Indication: HIV INFECTION
     Route: 048
     Dates: start: 200709
  2. LAMIVUDINE-HIV [Concomitant]
     Indication: HIV INFECTION
     Route: 048
     Dates: start: 200709
  3. EFAVIRENZ [Concomitant]
     Indication: HIV INFECTION
     Route: 048

REACTIONS (2)
  - Angina unstable [Recovering/Resolving]
  - Coronary artery thrombosis [Unknown]
